FAERS Safety Report 9286244 (Version 2)
Quarter: 2013Q2

REPORT INFORMATION
  Report Type: Spontaneous
  Country: FR (occurrence: FR)
  Receive Date: 20130513
  Receipt Date: 20130531
  Transmission Date: 20140414
  Serious: Yes (Hospitalization)
  Sender: FDA-Public Use
  Company Number: FR-GLAXOSMITHKLINE-B0888956A

PATIENT
  Age: 65 Year
  Sex: Female

DRUGS (4)
  1. BOOSTRIX-POLIO [Suspect]
     Indication: PROPHYLAXIS
     Dosage: 1INJ SINGLE DOSE
     Route: 030
     Dates: start: 20121220, end: 20121220
  2. MALARONE [Suspect]
     Indication: PRODUCT USED FOR UNKNOWN INDICATION
     Route: 048
     Dates: start: 20130120
  3. CACIT D3 [Concomitant]
  4. LAROXYL [Concomitant]

REACTIONS (7)
  - Myelitis transverse [Recovering/Resolving]
  - Peripheral sensorimotor neuropathy [Recovering/Resolving]
  - Acute disseminated encephalomyelitis [Recovering/Resolving]
  - Abdominal pain [Unknown]
  - Diarrhoea [Unknown]
  - Pseudomembranous colitis [Unknown]
  - Urosepsis [Unknown]
